APPROVED DRUG PRODUCT: PFIZERPEN G
Active Ingredient: PENICILLIN G POTASSIUM
Strength: 800,000 UNITS
Dosage Form/Route: TABLET;ORAL
Application: A060075 | Product #006
Applicant: PFIZER LABORATORIES DIV PFIZER INC
Approved: Approved Prior to Jan 1, 1982 | RLD: No | RS: No | Type: DISCN